FAERS Safety Report 7604454-9 (Version None)
Quarter: 2011Q3

REPORT INFORMATION
  Report Type: 
  Country: None (occurrence: None)
  Receive Date: 20110712
  Receipt Date: 20110707
  Transmission Date: 20111222
  Serious: Yes (Death, Other)
  Sender: FDA-Public Use
  Company Number: PHHY2011DK61598

PATIENT

DRUGS (1)
  1. AMLODIPINE [Suspect]
     Route: 048

REACTIONS (4)
  - DRUG LEVEL INCREASED [None]
  - LEUKAEMIA [None]
  - SYNCOPE [None]
  - HEAT EXHAUSTION [None]
